FAERS Safety Report 6941289-4 (Version None)
Quarter: 2010Q3

REPORT INFORMATION
  Report Type: 
  Country: None (occurrence: None)
  Receive Date: 20100825
  Receipt Date: 20100817
  Transmission Date: 20110219
  Serious: Yes (Death)
  Sender: FDA-Public Use
  Company Number: US-AMGEN-QUU428871

PATIENT
  Sex: Male

DRUGS (2)
  1. NPLATE [Suspect]
     Indication: IDIOPATHIC THROMBOCYTOPENIC PURPURA
     Dates: start: 20100219, end: 20100305
  2. CORTICOSTEROIDS [Concomitant]
     Dates: start: 20091201

REACTIONS (3)
  - CARDIO-RESPIRATORY ARREST [None]
  - HEAD AND NECK CANCER [None]
  - SEPSIS [None]
